FAERS Safety Report 18237429 (Version 1)
Quarter: 2020Q3

REPORT INFORMATION
  Report Type: Report from Study
  Country: KR (occurrence: KR)
  Receive Date: 20200907
  Receipt Date: 20200907
  Transmission Date: 20201103
  Serious: Yes (Hospitalization, Other)
  Sender: FDA-Public Use
  Company Number: KR-TEVA-2020-KR-1826126

PATIENT
  Age: 57 Year
  Sex: Female
  Weight: 55 kg

DRUGS (14)
  1. DEXAMETHASON [Concomitant]
     Active Substance: DEXAMETHASONE
     Indication: PREMEDICATION
     Route: 042
  2. DOXORUBICIN [Suspect]
     Active Substance: DOXORUBICIN
     Indication: TRIPLE NEGATIVE BREAST CANCER
     Dosage: DAY 1 OF EACH CYCLE. 48 MG/M2
     Route: 017
     Dates: start: 20150504
  3. PACLITAXEL. [Suspect]
     Active Substance: PACLITAXEL
     Indication: TRIPLE NEGATIVE BREAST CANCER
     Dosage: DAY 1 OF 12 WEEKLY CYCLES DURING CHEMOTHERAPY SEGMENT 1 (80 MG/M2)
     Route: 042
     Dates: start: 20150129, end: 20150427
  4. LORAZEPAM. [Concomitant]
     Active Substance: LORAZEPAM
     Indication: PREMEDICATION
     Dosage: 1 MILLIGRAM DAILY;
     Route: 042
     Dates: start: 20150504, end: 20150504
  5. DOMPERIDONE [Concomitant]
     Active Substance: DOMPERIDONE
     Indication: NAUSEA
     Dosage: 30 MILLIGRAM DAILY;
     Route: 048
     Dates: start: 20150224
  6. CHLORPHENIRAMINE. [Concomitant]
     Active Substance: CHLORPHENIRAMINE
     Indication: PREMEDICATION
     Dosage: 4 MILLIGRAM DAILY; ONCE
     Route: 042
     Dates: start: 20150504, end: 20150504
  7. DEXAMETHASON [Concomitant]
     Active Substance: DEXAMETHASONE
     Route: 048
  8. APREPITANT. [Concomitant]
     Active Substance: APREPITANT
     Indication: PREMEDICATION
     Dosage: 125 MILLIGRAM DAILY;
     Route: 048
     Dates: start: 20150504, end: 20150504
  9. CHLORPHENIRAMINE. [Concomitant]
     Active Substance: CHLORPHENIRAMINE
     Dosage: 4 MILLIGRAM DAILY;
     Route: 042
     Dates: start: 20150129, end: 20150427
  10. CARBOPLATIN. [Suspect]
     Active Substance: CARBOPLATIN
     Indication: TRIPLE NEGATIVE BREAST CANCER
     Dosage: 6 AUC; DAY 1 OF 21?DAY CYCLE
     Route: 042
     Dates: start: 20150129
  11. CARBOPLATIN. [Suspect]
     Active Substance: CARBOPLATIN
     Dosage: 5 AUC; DAY 1 OF 21?DAY CYCLE
     Route: 042
     Dates: start: 20150316
  12. VELIPARIB [Suspect]
     Active Substance: VELIPARIB
     Indication: TRIPLE NEGATIVE BREAST CANCER
     Route: 048
     Dates: start: 20150129, end: 20150503
  13. CYCLOPHOSPHAMIDE. [Suspect]
     Active Substance: CYCLOPHOSPHAMIDE
     Indication: TRIPLE NEGATIVE BREAST CANCER
     Dosage: DAY 1 OF EACH CYCLE. 480 MG/M2.
     Route: 042
     Dates: start: 20150504
  14. RAMOSETRON HCL [Concomitant]
     Active Substance: RAMOSETRON HYDROCHLORIDE
     Indication: PREMEDICATION
     Dosage: .3 MILLIGRAM DAILY;
     Route: 042
     Dates: start: 20150504, end: 20150504

REACTIONS (1)
  - Febrile neutropenia [Recovered/Resolved]

NARRATIVE: CASE EVENT DATE: 20150517
